FAERS Safety Report 7568047-4 (Version None)
Quarter: 2011Q2

REPORT INFORMATION
  Report Type: 
  Country: None (occurrence: None)
  Receive Date: 20110616
  Receipt Date: 20110531
  Transmission Date: 20111010
  Serious: Yes (Other)
  Sender: FDA-Public Use
  Company Number: FK201101120

PATIENT
  Age: 44 Year
  Sex: Female

DRUGS (5)
  1. PACLITAXEL [Suspect]
     Indication: BREAST CANCER METASTATIC
     Dates: start: 20080501, end: 20081101
  2. PAMIDRONIC ACID (PAMIDRONIC ACID) (PAMIDRONIC ACID) [Concomitant]
  3. PARACETAMOL (ACETAMINOPHEN) (ACETAMINOPHEN) [Concomitant]
  4. BEVACIZUMAB (BEVACIZUMAB) (BEVACIZUMAB) [Suspect]
     Indication: BREAST CANCER METASTATIC
     Dates: start: 20080501, end: 20090501
  5. CAPECITABINE (CAPECITABINE) (CAPECITABINE) [Concomitant]

REACTIONS (3)
  - HEADACHE [None]
  - RASH [None]
  - BLOOD PRESSURE INCREASED [None]
